FAERS Safety Report 18120288 (Version 2)
Quarter: 2021Q1

REPORT INFORMATION
  Report Type: Spontaneous
  Country: US (occurrence: US)
  Receive Date: 20200806
  Receipt Date: 20210302
  Transmission Date: 20210419
  Serious: Yes (Other)
  Sender: FDA-Public Use
  Company Number: US-ASTRAZENECA-2020SE97622

PATIENT
  Sex: Female
  Weight: 58.5 kg

DRUGS (52)
  1. NEXIUM [Suspect]
     Active Substance: ESOMEPRAZOLE MAGNESIUM
     Indication: GASTROOESOPHAGEAL REFLUX DISEASE
     Route: 048
     Dates: start: 201602, end: 201802
  2. MELOXICAM. [Concomitant]
     Active Substance: MELOXICAM
     Indication: INFLAMMATION
     Route: 048
     Dates: start: 201502
  3. VITAMIN C [Concomitant]
     Active Substance: ASCORBIC ACID
     Indication: SUPPLEMENTATION THERAPY
     Dates: start: 2016
  4. OXYCODONE [Concomitant]
     Active Substance: OXYCODONE
  5. TRAZODONE [Concomitant]
     Active Substance: TRAZODONE HYDROCHLORIDE
  6. GABAPENTIN. [Concomitant]
     Active Substance: GABAPENTIN
  7. CEPHALEXIN. [Concomitant]
     Active Substance: CEPHALEXIN
  8. CIPROFLOXACIN. [Concomitant]
     Active Substance: CIPROFLOXACIN
  9. CLONAZEPAM. [Concomitant]
     Active Substance: CLONAZEPAM
  10. KETOCONAZOLE. [Concomitant]
     Active Substance: KETOCONAZOLE
  11. TRAMADOL/APAP [Concomitant]
     Active Substance: ACETAMINOPHEN\TRAMADOL
  12. DEXILANT [Suspect]
     Active Substance: DEXLANSOPRAZOLE
     Indication: GASTROOESOPHAGEAL REFLUX DISEASE
     Route: 065
     Dates: end: 2018
  13. ACETAMINOPHEN. [Concomitant]
     Active Substance: ACETAMINOPHEN
  14. HYDROCORTISONE. [Concomitant]
     Active Substance: HYDROCORTISONE
  15. OLANZAPINE. [Concomitant]
     Active Substance: OLANZAPINE
  16. SILVER SULFADIAZINE. [Concomitant]
     Active Substance: SILVER SULFADIAZINE
  17. AZITHROMYCIN ANHYDROUS. [Concomitant]
     Active Substance: AZITHROMYCIN ANHYDROUS
  18. TERCONAZOLE. [Concomitant]
     Active Substance: TERCONAZOLE
  19. COLESTIPOL [Concomitant]
     Active Substance: COLESTIPOL
  20. DEXILANT [Suspect]
     Active Substance: DEXLANSOPRAZOLE
     Indication: GASTROOESOPHAGEAL REFLUX DISEASE
     Route: 065
     Dates: start: 201602, end: 201802
  21. ACIPHEX [Suspect]
     Active Substance: RABEPRAZOLE SODIUM
     Indication: GASTROOESOPHAGEAL REFLUX DISEASE
     Route: 065
     Dates: end: 2020
  22. MULTIVITAMINS [Concomitant]
     Active Substance: VITAMINS
     Indication: SUPPLEMENTATION THERAPY
     Dates: start: 2016
  23. TUMS [Concomitant]
     Active Substance: CALCIUM CARBONATE
  24. TRIAMCINOLONE [Concomitant]
     Active Substance: TRIAMCINOLONE
  25. DIAZEPAM. [Concomitant]
     Active Substance: DIAZEPAM
  26. CARAFATE [Concomitant]
     Active Substance: SUCRALFATE
  27. CYCLOBENZAPRINE. [Concomitant]
     Active Substance: CYCLOBENZAPRINE
  28. CLOBETASOL [Concomitant]
     Active Substance: CLOBETASOL
  29. FLUCONAZOLE. [Concomitant]
     Active Substance: FLUCONAZOLE
  30. ACYCLOVIR. [Concomitant]
     Active Substance: ACYCLOVIR
     Indication: INFECTION
     Dates: start: 201502, end: 2016
  31. DIPHENOXYLATE/ATROPINE [Concomitant]
     Active Substance: ATROPINE\DIPHENOXYLATE
  32. HYDROCODONE/ACETAMINOPHEN [Concomitant]
     Active Substance: ACETAMINOPHEN\HYDROCODONE
  33. AMOX?CLAV [Concomitant]
     Active Substance: AMOXICILLIN\CLAVULANATE POTASSIUM
  34. METHSCOPOLAMINE [Concomitant]
     Active Substance: METHSCOPOLAMINE\METHSCOPOLAMINE BROMIDE
  35. PANTOPRAZOLE [Suspect]
     Active Substance: PANTOPRAZOLE
     Indication: GASTROOESOPHAGEAL REFLUX DISEASE
     Dosage: GENERIC
     Route: 065
  36. ERYTHROMYCIN. [Concomitant]
     Active Substance: ERYTHROMYCIN
  37. BUPROPION. [Concomitant]
     Active Substance: BUPROPION
  38. NITROFURANTOIN. [Concomitant]
     Active Substance: NITROFURANTOIN
  39. ONDANSETRON [Concomitant]
     Active Substance: ONDANSETRON
  40. HYDROXYZINE PAMOATE. [Concomitant]
     Active Substance: HYDROXYZINE PAMOATE
  41. NEXIUM [Suspect]
     Active Substance: ESOMEPRAZOLE MAGNESIUM
     Indication: GASTROOESOPHAGEAL REFLUX DISEASE
     Route: 048
     Dates: start: 2001
  42. TIZANIDINE. [Concomitant]
     Active Substance: TIZANIDINE
  43. BETAMETHASONE. [Concomitant]
     Active Substance: BETAMETHASONE
  44. TOPIRAMATE. [Concomitant]
     Active Substance: TOPIRAMATE
  45. TOBRAMYCIN. [Concomitant]
     Active Substance: TOBRAMYCIN
  46. CHLORHEXIDINE [Concomitant]
     Active Substance: CHLORHEXIDINE
  47. PROPRANOLOL [Concomitant]
     Active Substance: PROPRANOLOL HYDROCHLORIDE
  48. METRONIDAZOLE. [Concomitant]
     Active Substance: METRONIDAZOLE
  49. FLUOCINONIDE. [Concomitant]
     Active Substance: FLUOCINONIDE
  50. OFLOXACIN. [Concomitant]
     Active Substance: OFLOXACIN
  51. PREDNISOLONE. [Concomitant]
     Active Substance: PREDNISOLONE
  52. SUMATRIPTAN. [Concomitant]
     Active Substance: SUMATRIPTAN

REACTIONS (2)
  - Chronic kidney disease [Not Recovered/Not Resolved]
  - Gastrooesophageal reflux disease [Not Recovered/Not Resolved]
